FAERS Safety Report 9896930 (Version 1)
Quarter: 2014Q1

REPORT INFORMATION
  Report Type: Spontaneous
  Country: US (occurrence: US)
  Receive Date: 20140214
  Receipt Date: 20140214
  Transmission Date: 20141002
  Serious: No
  Sender: FDA-Public Use
  Company Number: US-009507513-1402USA005514

PATIENT
  Sex: Female

DRUGS (2)
  1. PROVENTIL [Suspect]
     Indication: ASTHMA
     Dosage: 1-2 PUFFS TAKEN 4 TIMES PER DAY
     Route: 055
  2. DULERA [Suspect]
     Dosage: 2 PUFFS, ONCE DAILY
     Route: 055

REACTIONS (1)
  - Heart rate increased [Unknown]
